FAERS Safety Report 21410053 (Version 5)
Quarter: 2023Q1

REPORT INFORMATION
  Report Type: Report from Study
  Country: US (occurrence: US)
  Receive Date: 20221005
  Receipt Date: 20230118
  Transmission Date: 20230418
  Serious: Yes (Disabling, Other)
  Sender: FDA-Public Use
  Company Number: US-NOVARTISTESTPH-NVSC2022US224880

PATIENT
  Sex: Female

DRUGS (1)
  1. PIQRAY [Suspect]
     Active Substance: ALPELISIB
     Indication: Breast cancer
     Dosage: 300 MG, QD
     Route: 048
     Dates: start: 20221005

REACTIONS (14)
  - Skin reaction [Recovered/Resolved]
  - Rash [Recovered/Resolved]
  - Generalised oedema [Unknown]
  - Pelvic fracture [Not Recovered/Not Resolved]
  - Lip exfoliation [Recovering/Resolving]
  - Oral candidiasis [Recovered/Resolved]
  - Excessive eye blinking [Unknown]
  - Muscular weakness [Recovered/Resolved]
  - Eye swelling [Recovered/Resolved]
  - Diarrhoea [Recovered/Resolved]
  - Fatigue [Recovered/Resolved]
  - Oral mucosal exfoliation [Recovered/Resolved]
  - Joint swelling [Not Recovered/Not Resolved]
  - Arthralgia [Not Recovered/Not Resolved]
